FAERS Safety Report 25654594 (Version 1)
Quarter: 2025Q3

REPORT INFORMATION
  Report Type: Spontaneous
  Country: CH (occurrence: CH)
  Receive Date: 20250807
  Receipt Date: 20250807
  Transmission Date: 20251020
  Serious: Yes (Other)
  Sender: PFIZER
  Company Number: CH-PFIZER INC-PV202500093966

PATIENT
  Age: 71 Year
  Sex: Female

DRUGS (4)
  1. BEVACIZUMAB [Suspect]
     Active Substance: BEVACIZUMAB
     Indication: Ovarian epithelial cancer
     Dosage: UNK, EVERY 3 WEEKS
     Dates: start: 2020
  2. CARBOPLATIN [Concomitant]
     Active Substance: CARBOPLATIN
     Indication: Ovarian epithelial cancer
     Dosage: AUC 6, EVERY 3 WEEKS
     Dates: start: 202002
  3. PACLITAXEL [Concomitant]
     Active Substance: PACLITAXEL
     Indication: Ovarian epithelial cancer
     Dosage: 80 MG/M2, WEEKLY
     Dates: start: 202002
  4. OLAPARIB [Concomitant]
     Active Substance: OLAPARIB
     Indication: Ovarian epithelial cancer
     Dosage: 300 MG, BID
     Dates: start: 202009

REACTIONS (1)
  - Nervous system disorder [Unknown]
